FAERS Safety Report 9128224 (Version 1)
Quarter: 2013Q1

REPORT INFORMATION
  Report Type: Spontaneous
  Country: US (occurrence: US)
  Receive Date: 20130228
  Receipt Date: 20130228
  Transmission Date: 20140127
  Serious: Yes (Hospitalization)
  Sender: FDA-Public Use
  Company Number: US-ELI_LILLY_AND_COMPANY-US201302005083

PATIENT
  Sex: Male

DRUGS (6)
  1. DULOXETINE HYDROCHLORIDE [Suspect]
     Indication: PAIN
     Dosage: 30 MG, UNKNOWN
  2. DULOXETINE HYDROCHLORIDE [Suspect]
     Dosage: 60 MG, UNKNOWN
  3. DULOXETINE HYDROCHLORIDE [Suspect]
     Dosage: 90 MG, UNKNOWN
  4. HYDROCODONE [Concomitant]
     Indication: PAIN
  5. DIOVAN [Concomitant]
     Indication: BLOOD PRESSURE
  6. NAPROXEN [Concomitant]
     Indication: PAIN

REACTIONS (13)
  - Atrial fibrillation [Recovered/Resolved]
  - VIIth nerve paralysis [Recovered/Resolved]
  - Eye disorder [Recovered/Resolved]
  - Bradyphrenia [Recovered/Resolved]
  - Drug withdrawal syndrome [Recovered/Resolved]
  - Dizziness [Recovered/Resolved]
  - Paraesthesia [Recovered/Resolved]
  - Feeling abnormal [Recovered/Resolved]
  - Pruritus [Unknown]
  - Arthralgia [Unknown]
  - Drug ineffective [Unknown]
  - Headache [Unknown]
  - Insomnia [Unknown]
